FAERS Safety Report 7020375-7 (Version None)
Quarter: 2010Q3

REPORT INFORMATION
  Report Type: 
  Country: None (occurrence: None)
  Receive Date: 20100927
  Receipt Date: 20100910
  Transmission Date: 20110219
  Serious: Yes (Hospitalization)
  Sender: FDA-Public Use
  Company Number: AE 2010-277

PATIENT
  Age: 49 Year
  Sex: Female

DRUGS (4)
  1. CLOZAPINE [Suspect]
     Indication: SCHIZOPHRENIA, PARANOID TYPE
     Dosage: 550 MG DAILY PO
     Route: 048
  2. ESCITALOPRAM [Concomitant]
  3. TRAZODONE HCL [Concomitant]
  4. LAMOTRIGINE [Concomitant]

REACTIONS (9)
  - CATATONIA [None]
  - CLONUS [None]
  - DRUG DOSE OMISSION [None]
  - GAZE PALSY [None]
  - MENTAL STATUS CHANGES [None]
  - RESTLESSNESS [None]
  - SUICIDE ATTEMPT [None]
  - THERAPEUTIC RESPONSE DECREASED [None]
  - WITHDRAWAL SYNDROME [None]
